FAERS Safety Report 14632585 (Version 1)
Quarter: 2018Q1

REPORT INFORMATION
  Report Type: Spontaneous
  Country: US (occurrence: US)
  Receive Date: 20180313
  Receipt Date: 20180313
  Transmission Date: 20180509
  Serious: No
  Sender: FDA-Public Use
  Company Number: US-ROCHE-2013138

PATIENT
  Sex: Female

DRUGS (1)
  1. ALECENSA [Suspect]
     Active Substance: ALECTINIB HYDROCHLORIDE
     Indication: LUNG NEOPLASM MALIGNANT
     Dosage: ONGOING; YES
     Route: 065
     Dates: start: 2017

REACTIONS (5)
  - Increased appetite [Unknown]
  - Joint swelling [Unknown]
  - Cough [Unknown]
  - Abdominal discomfort [Recovered/Resolved]
  - Weight increased [Unknown]
